FAERS Safety Report 5257826-4 (Version None)
Quarter: 2007Q1

REPORT INFORMATION
  Report Type: 
  Country: None (occurrence: None)
  Receive Date: 20061220
  Receipt Date: 20060911
  Transmission Date: 20070707
  Serious: No
  Sender: FDA-Public Use
  Company Number: 2006RL000331

PATIENT
  Sex: Male

DRUGS (4)
  1. OMACOR [Suspect]
     Indication: HYPERTRIGLYCERIDAEMIA
     Dosage: 1000 MG; TID; PO
     Route: 048
     Dates: start: 20060621, end: 20060828
  2. NEXIUM [Concomitant]
  3. CARDIZEM [Concomitant]
  4. COUMADIN [Concomitant]

REACTIONS (2)
  - ALANINE AMINOTRANSFERASE INCREASED [None]
  - BLOOD ALKALINE PHOSPHATASE INCREASED [None]
